FAERS Safety Report 20611700 (Version 1)
Quarter: 2022Q1

REPORT INFORMATION
  Report Type: Spontaneous
  Country: FR (occurrence: FR)
  Receive Date: 20220318
  Receipt Date: 20220318
  Transmission Date: 20220423
  Serious: Yes (Other)
  Sender: FDA-Public Use
  Company Number: None

PATIENT
  Age: 41 Year
  Sex: Female
  Weight: 52 kg

DRUGS (2)
  1. NITROFURANTOIN [Suspect]
     Active Substance: NITROFURANTOIN
     Indication: Urinary tract infection
     Dosage: 6GM
     Route: 048
     Dates: start: 20211231, end: 20220107
  2. SECNIDAZOLE [Suspect]
     Active Substance: SECNIDAZOLE
     Indication: Bacterial vaginosis
     Dosage: SECNOL 2 G, GRANULES IN SACHET-DOSE, 1DF
     Route: 048
     Dates: start: 20211231, end: 20211231

REACTIONS (4)
  - Dry mouth [Recovered/Resolved]
  - Nausea [Recovered/Resolved]
  - Dizziness [Recovered/Resolved]
  - Asthenia [Recovered/Resolved]

NARRATIVE: CASE EVENT DATE: 20211231
